FAERS Safety Report 7199472-1 (Version None)
Quarter: 2010Q4

REPORT INFORMATION
  Report Type: 
  Country: None (occurrence: None)
  Receive Date: 20101228
  Receipt Date: 20101213
  Transmission Date: 20110411
  Serious: Yes (Hospitalization, Other)
  Sender: FDA-Public Use
  Company Number: DE-CELGENEUS-062-21880-10111559

PATIENT
  Age: 65 Year
  Sex: Female

DRUGS (14)
  1. REVLIMID [Suspect]
     Indication: MULTIPLE MYELOMA
     Route: 048
     Dates: start: 20090101
  2. REVLIMID [Suspect]
     Route: 048
     Dates: start: 20090601
  3. REVLIMID [Suspect]
     Route: 048
  4. REVLIMID [Suspect]
     Route: 048
     Dates: start: 20101001
  5. AMOXICILLIN [Suspect]
     Indication: NEUTROPENIC INFECTION
     Route: 065
  6. DOXYCYCLIN [Suspect]
     Route: 065
  7. SULBACTAM [Suspect]
     Indication: NEUTROPENIC INFECTION
     Route: 065
  8. CALCIUM [Concomitant]
     Route: 065
  9. PANTOPRAZOLE [Concomitant]
     Route: 065
  10. FOLIC ACID [Concomitant]
     Route: 065
  11. TORSEMIDE [Concomitant]
     Route: 065
  12. OLANZAPINE [Concomitant]
     Route: 065
  13. VALPROATE SODIUM [Concomitant]
     Dosage: 300MG-0-150MG
     Route: 065
  14. VENLAFAXIN RETARD [Concomitant]
     Dosage: 225 MG - 150 MG - 0
     Route: 065

REACTIONS (6)
  - ANAEMIA [None]
  - BLOOD DISORDER [None]
  - COLITIS ISCHAEMIC [None]
  - GASTROINTESTINAL HAEMORRHAGE [None]
  - LEUKOCYTOCLASTIC VASCULITIS [None]
  - PANCREATITIS NECROTISING [None]
